FAERS Safety Report 8514670-X (Version None)
Quarter: 2012Q3

REPORT INFORMATION
  Report Type: 
  Country: None (occurrence: None)
  Receive Date: 20120717
  Receipt Date: 20120712
  Transmission Date: 20120928
  Serious: Yes (Life-Threatening, Hospitalization, Other)
  Sender: FDA-Public Use
  Company Number: IT-CELGENEUS-083-C5013-12033151

PATIENT
  Sex: Male

DRUGS (5)
  1. ASPIRIN [Concomitant]
     Dosage: 100 MILLIGRAM
     Route: 048
     Dates: start: 20120222, end: 20120327
  2. LACIDIPINE [Concomitant]
     Dosage: 6 MILLIGRAM
     Route: 048
     Dates: start: 20120222, end: 20120327
  3. ALLOPURINOL [Concomitant]
     Indication: PROPHYLAXIS
     Dosage: 300 MILLIGRAM
     Route: 048
     Dates: start: 20110210
  4. LISINOPRIL [Concomitant]
     Dosage: 20 MILLIGRAM
     Route: 048
     Dates: start: 20120222, end: 20120327
  5. CHLORAMBUCIL [Suspect]
     Dosage: .0533 MILLIGRAM/SQ. METER
     Route: 065
     Dates: start: 20110310, end: 20120309

REACTIONS (3)
  - ACUTE MYELOID LEUKAEMIA [None]
  - THROMBOCYTOPENIA [None]
  - ANAEMIA [None]
